FAERS Safety Report 25863636 (Version 1)
Quarter: 2025Q3

REPORT INFORMATION
  Report Type: Report from Study
  Country: CA (occurrence: CA)
  Receive Date: 20250930
  Receipt Date: 20250930
  Transmission Date: 20251021
  Serious: Yes (Other)
  Sender: TAKEDA
  Company Number: CA-TAKEDA-2024TUS062444

PATIENT
  Sex: Male

DRUGS (3)
  1. VEDOLIZUMAB [Suspect]
     Active Substance: VEDOLIZUMAB
     Indication: Colitis ulcerative
  2. VEDOLIZUMAB [Suspect]
     Active Substance: VEDOLIZUMAB
  3. CITALOPRAM [Concomitant]
     Active Substance: CITALOPRAM

REACTIONS (4)
  - Haematochezia [Unknown]
  - Therapeutic reaction time decreased [Unknown]
  - Proctalgia [Unknown]
  - Frequent bowel movements [Unknown]
